FAERS Safety Report 4327917-0 (Version None)
Quarter: 2004Q1

REPORT INFORMATION
  Report Type: 
  Country: None (occurrence: None)
  Receive Date: 20040325
  Receipt Date: 20040309
  Transmission Date: 20041129
  Serious: Yes (Hospitalization)
  Sender: FDA-Public Use
  Company Number: 2004AP01435

PATIENT
  Age: 83 Year
  Sex: Female

DRUGS (6)
  1. ATENOLOL [Suspect]
     Indication: HYPERTENSION
     Dosage: 50 MG DAILY PO
     Route: 048
     Dates: end: 20030801
  2. GLIBENCLAMIDE ^NM PHARMA^ [Suspect]
     Indication: DIABETES MELLITUS NON-INSULIN-DEPENDENT
     Dosage: 3.5 MG DAILY PO
     Route: 048
     Dates: end: 20030809
  3. TRIMETHOPRIM [Suspect]
     Indication: URINARY TRACT INFECTION
     Dosage: 320 MG DAILY
     Dates: start: 20030815, end: 20030820
  4. ZUCLOPENTHIXOL [Suspect]
     Dosage: 2 MG DAILY
     Dates: end: 20030801
  5. METFORMIN HCL [Suspect]
     Indication: DIABETES MELLITUS NON-INSULIN-DEPENDENT
     Dosage: 2 G DAILY
     Dates: end: 20030820
  6. TROMBYL [Concomitant]

REACTIONS (5)
  - CEREBRAL ATROPHY [None]
  - DEMENTIA [None]
  - FALL [None]
  - NEUTROPENIA [None]
  - URINARY TRACT INFECTION [None]
